FAERS Safety Report 6304094-8 (Version None)
Quarter: 2009Q3

REPORT INFORMATION
  Report Type: 
  Country: None (occurrence: None)
  Receive Date: 20090806
  Receipt Date: 20090512
  Transmission Date: 20100115
  Serious: Yes (Hospitalization)
  Sender: FDA-Public Use
  Company Number: 2009050039

PATIENT
  Sex: Female

DRUGS (2)
  1. ASTEPRO [Suspect]
     Dosage: IN
     Route: 055
     Dates: start: 20090101
  2. XYZAL [Suspect]
     Dosage: ORAL
     Route: 048

REACTIONS (1)
  - HALLUCINATION [None]
